FAERS Safety Report 9325570 (Version 1)
Quarter: 2013Q2

REPORT INFORMATION
  Report Type: Spontaneous
  Country: FR (occurrence: FR)
  Receive Date: 20130604
  Receipt Date: 20130604
  Transmission Date: 20140414
  Serious: Yes (Life-Threatening, Hospitalization)
  Sender: FDA-Public Use
  Company Number: PHHY2013FR055930

PATIENT
  Age: 85 Year
  Sex: Female

DRUGS (3)
  1. ZOMETA [Suspect]
     Indication: HYPERCALCAEMIA OF MALIGNANCY
     Route: 051
     Dates: start: 20130111
  2. XELODA [Suspect]
     Indication: BREAST CANCER METASTATIC
     Route: 051
     Dates: start: 201301
  3. KEPRA [Concomitant]
     Indication: EPILEPSY
     Dates: start: 2011

REACTIONS (1)
  - Status epilepticus [Recovered/Resolved]
